FAERS Safety Report 10935478 (Version 4)
Quarter: 2016Q3

REPORT INFORMATION
  Report Type: Spontaneous
  Country: JP (occurrence: JP)
  Receive Date: 20150320
  Receipt Date: 20160818
  Transmission Date: 20161109
  Serious: Yes (Death, Other)
  Sender: FDA-Public Use
  Company Number: JP-GLAXOSMITHKLINE-JP2015JPN014914

PATIENT
  Age: 86 Year
  Sex: Female
  Weight: 51 kg

DRUGS (18)
  1. CHINESE MEDICINE [Concomitant]
     Active Substance: UNSPECIFIED INGREDIENT
     Dosage: 1 DF, TID
     Dates: start: 20150124
  2. MIYA-BM [Concomitant]
     Active Substance: CLOSTRIDIUM BUTYRICUM SPORES STRAIN M-55
     Dosage: 2 DF, BID
     Dates: start: 20150124
  3. TULOBUTEROL [Concomitant]
     Active Substance: TULOBUTEROL
     Dosage: 2 MG, QD
     Dates: start: 20150124
  4. SODIUM CHLORIDE. [Concomitant]
     Active Substance: SODIUM CHLORIDE
     Dosage: 2 G, TID
     Dates: start: 20150219
  5. LAMICTAL [Suspect]
     Active Substance: LAMOTRIGINE
     Indication: EPILEPSY
     Dosage: 50 MG, QD
     Route: 048
     Dates: start: 20141204
  6. FUROSEMIDE. [Concomitant]
     Active Substance: FUROSEMIDE
     Indication: DIURETIC THERAPY
     Dosage: 20 MG, QD
     Dates: start: 20150124
  7. CLIMAGEN [Concomitant]
     Active Substance: FAMOTIDINE
     Dosage: 20 MG, BID
     Dates: start: 20150124
  8. CHINESE MEDICINE [Concomitant]
     Active Substance: UNSPECIFIED INGREDIENT
     Indication: DIURETIC THERAPY
     Dosage: 2.5 G, TID
     Dates: start: 20150124
  9. DERMOVATE [Concomitant]
     Active Substance: CLOBETASOL
     Dosage: UNK, BID
  10. DERMOSOL-G [Concomitant]
     Dosage: UNK, BID
     Dates: start: 20141109
  11. MEMARY [Concomitant]
     Active Substance: MEMANTINE HYDROCHLORIDE
     Indication: DEMENTIA ALZHEIMER^S TYPE
     Dosage: 5 MG, QD
     Dates: start: 20150123
  12. LORATADINE. [Concomitant]
     Active Substance: LORATADINE
     Indication: HYPERSENSITIVITY
     Dosage: 10 MG, QD
     Dates: start: 20150124
  13. WHITE PETROLATUM [Concomitant]
     Active Substance: PETROLATUM
     Dosage: UNK, QD
     Dates: start: 20150213
  14. ASPARA-CA [Concomitant]
     Active Substance: CALCIUM ASPARTATE
     Indication: MINERAL SUPPLEMENTATION
     Dosage: 200 MG, QD
     Dates: start: 20150124
  15. LAMICTAL [Suspect]
     Active Substance: LAMOTRIGINE
     Dosage: 50 MG, QD
     Route: 048
     Dates: end: 20150124
  16. CALFINA [Concomitant]
     Active Substance: ALFACALCIDOL
     Indication: OSTEOPOROSIS
     Dosage: 1.0 ?G, QD
     Dates: start: 20150124
  17. TAMIFLU [Suspect]
     Active Substance: OSELTAMIVIR PHOSPHATE
     Indication: ANTIVIRAL PROPHYLAXIS
     Dosage: UNK
     Route: 048
     Dates: start: 20141228, end: 20141229
  18. ASPARA POTASSIUM [Concomitant]
     Active Substance: POTASSIUM ASPARTATE
     Dosage: 1.2 G, TID
     Dates: start: 20150213

REACTIONS (20)
  - Erythema [Recovering/Resolving]
  - Lip erosion [Unknown]
  - Skin erosion [Unknown]
  - Fungal infection [Unknown]
  - Ocular hyperaemia [Unknown]
  - Rash generalised [Recovering/Resolving]
  - Oral mucosa erosion [Unknown]
  - Drug eruption [Unknown]
  - Blood albumin decreased [Unknown]
  - Scab [Unknown]
  - Stevens-Johnson syndrome [Recovering/Resolving]
  - Hypercatabolism [Unknown]
  - Pigmentation disorder [Unknown]
  - Blood beta-D-glucan increased [Unknown]
  - Erythema of eyelid [Unknown]
  - General physical health deterioration [Fatal]
  - Rash [Recovering/Resolving]
  - Conjunctival hyperaemia [Unknown]
  - Eyelid erosion [Unknown]
  - Rash maculo-papular [Unknown]

NARRATIVE: CASE EVENT DATE: 20141229
